FAERS Safety Report 7458312-3 (Version None)
Quarter: 2011Q2

REPORT INFORMATION
  Report Type: 
  Country: None (occurrence: None)
  Receive Date: 20110503
  Receipt Date: 20110503
  Transmission Date: 20111010
  Serious: Yes (Other)
  Sender: FDA-Public Use
  Company Number: None

PATIENT
  Age: 32 Year
  Sex: Male
  Weight: 83.9154 kg

DRUGS (1)
  1. CHANTIX [Suspect]
     Indication: SMOKING CESSATION THERAPY
     Dosage: 1MG TABLETS 2 DAILY
     Dates: start: 20110419, end: 20110430

REACTIONS (3)
  - SUICIDAL IDEATION [None]
  - MOOD SWINGS [None]
  - DEPRESSED MOOD [None]
